FAERS Safety Report 20931436 (Version 1)
Quarter: 2022Q2

REPORT INFORMATION
  Report Type: Other
  Country: US (occurrence: None)
  Receive Date: 20220608
  Receipt Date: 20220608
  Transmission Date: 20220721
  Serious: Yes (Death)
  Sender: FDA-Public Use
  Company Number: US-ROCHE-3109985

PATIENT
  Sex: Female

DRUGS (2)
  1. POLIVY [Suspect]
     Active Substance: POLATUZUMAB VEDOTIN-PIIQ
     Indication: Mantle cell lymphoma
     Dosage: INFUSE 126MG
     Route: 042
  2. RUXIENCE [Concomitant]
     Active Substance: RITUXIMAB-PVVR

REACTIONS (1)
  - Death [Fatal]
